FAERS Safety Report 10067241 (Version 1)
Quarter: 2014Q2

REPORT INFORMATION
  Report Type: Spontaneous
  Country: JP (occurrence: JP)
  Receive Date: 20140409
  Receipt Date: 20140409
  Transmission Date: 20141212
  Serious: Yes (Other)
  Sender: FDA-Public Use
  Company Number: JP-UCBSA-117427

PATIENT
  Sex: 0

DRUGS (3)
  1. E KEPPRA [Suspect]
     Route: 048
     Dates: start: 20140319
  2. SELENICA-R [Concomitant]
     Route: 048
  3. INSULIN [Concomitant]

REACTIONS (1)
  - Blood glucose fluctuation [Unknown]
